FAERS Safety Report 14723348 (Version 1)
Quarter: 2018Q2

REPORT INFORMATION
  Report Type: Spontaneous
  Country: FR (occurrence: FR)
  Receive Date: 20180405
  Receipt Date: 20180405
  Transmission Date: 20180711
  Serious: Yes (Hospitalization, Other)
  Sender: FDA-Public Use
  Company Number: FR-SA-2018SA096708

PATIENT
  Age: 62 Year
  Sex: Male

DRUGS (8)
  1. BUSILVEX [Suspect]
     Active Substance: BUSULFAN
     Indication: BONE MARROW CONDITIONING REGIMEN
     Route: 041
     Dates: start: 20170614, end: 20170617
  2. ORACILLINE [Concomitant]
     Active Substance: PENICILLIN V
     Route: 065
  3. THYMOGLOBULIN [Suspect]
     Active Substance: LAPINE T-LYMPHOCYTE IMMUNE GLOBULIN
     Indication: BONE MARROW CONDITIONING REGIMEN
     Route: 041
     Dates: start: 20170617, end: 20170618
  4. FLUDARA [Suspect]
     Active Substance: FLUDARABINE PHOSPHATE
     Indication: BONE MARROW CONDITIONING REGIMEN
     Route: 041
     Dates: start: 20170614, end: 20170618
  5. NOXAFIL [Suspect]
     Active Substance: POSACONAZOLE
     Route: 065
  6. ZELITREX [Concomitant]
     Active Substance: VALACYCLOVIR HYDROCHLORIDE
     Route: 065
  7. DELURSAN [Concomitant]
     Active Substance: URSODIOL
     Route: 065
  8. BACTRIM [Concomitant]
     Active Substance: SULFAMETHOXAZOLE\TRIMETHOPRIM
     Route: 065

REACTIONS (4)
  - Enterobacter test positive [Unknown]
  - Condition aggravated [Recovered/Resolved]
  - Cytomegalovirus infection [Recovered/Resolved with Sequelae]
  - Cachexia [Unknown]

NARRATIVE: CASE EVENT DATE: 20171012
